FAERS Safety Report 8759125 (Version 2)
Quarter: 2012Q4

REPORT INFORMATION
  Report Type: Report from Study
  Country: GB (occurrence: GB)
  Receive Date: 20120829
  Receipt Date: 20120830
  Transmission Date: 20130627
  Serious: Yes (Death)
  Sender: FDA-Public Use
  Company Number: PHHO2012GB012480

PATIENT

DRUGS (1)
  1. AMN107 [Suspect]
     Indication: MALIGNANT MELANOMA
     Dosage: UNK

REACTIONS (2)
  - Neoplasm progression [Fatal]
  - Malignant neoplasm progression [Fatal]
